FAERS Safety Report 7442637-1 (Version None)
Quarter: 2011Q2

REPORT INFORMATION
  Report Type: 
  Country: None (occurrence: None)
  Receive Date: 20110428
  Receipt Date: 20110422
  Transmission Date: 20111010
  Serious: Yes (Other)
  Sender: FDA-Public Use
  Company Number: US-ELI_LILLY_AND_COMPANY-US201103005251

PATIENT
  Sex: Female

DRUGS (6)
  1. HUMULIN N [Suspect]
     Indication: TYPE 1 DIABETES MELLITUS
     Dates: end: 20090101
  2. LANTUS [Concomitant]
     Dosage: UNK, DAILY (1/D)
  3. HUMALOG [Suspect]
     Indication: TYPE 1 DIABETES MELLITUS
     Dosage: UNK, AS NEEDED
     Dates: start: 20090101
  4. HUMALOG [Suspect]
     Dosage: UNK, PRN
     Dates: start: 20090101
  5. HUMULIN R [Suspect]
     Indication: TYPE 1 DIABETES MELLITUS
     Dates: end: 20090101
  6. HUMALOG [Suspect]
     Dosage: UNK, PRN

REACTIONS (10)
  - VOMITING [None]
  - CONFUSIONAL STATE [None]
  - BLOOD GLUCOSE INCREASED [None]
  - MALAISE [None]
  - BLOOD GLUCOSE DECREASED [None]
  - DRUG EFFECT DELAYED [None]
  - COORDINATION ABNORMAL [None]
  - HYPOGLYCAEMIA UNAWARENESS [None]
  - NEUROPATHY PERIPHERAL [None]
  - LOSS OF CONSCIOUSNESS [None]
